FAERS Safety Report 10034092 (Version 2)
Quarter: 2014Q2

REPORT INFORMATION
  Report Type: Other
  Country: GB (occurrence: GB)
  Receive Date: 20140325
  Receipt Date: 20140514
  Transmission Date: 20141212
  Serious: Yes (Death, Other)
  Sender: FDA-Public Use
  Company Number: GB-SUN PHARMACEUTICAL INDUSTRIES LTD-2014SUN00616

PATIENT
  Sex: Male

DRUGS (4)
  1. BACLOFEN [Suspect]
     Indication: PRODUCT USED FOR UNKNOWN INDICATION
     Dosage: 319.5 UG, DAILY
     Route: 037
  2. BACLOFEN [Suspect]
     Dosage: HIGH DOSE
     Route: 037
  3. BACLOFEN [Suspect]
     Dosage: UNK (BOLUS)
     Route: 037
  4. BACLOFEN [Suspect]
     Dosage: 319.5 UG/DAY
     Route: 037

REACTIONS (3)
  - Pulmonary embolism [Fatal]
  - Muscle spasticity [Recovering/Resolving]
  - No therapeutic response [Unknown]
